FAERS Safety Report 24175431 (Version 2)
Quarter: 2024Q3

REPORT INFORMATION
  Report Type: Spontaneous
  Country: US (occurrence: US)
  Receive Date: 20240805
  Receipt Date: 20240815
  Transmission Date: 20241017
  Serious: No
  Sender: MERCK
  Company Number: US-009507513-2407USA015975

PATIENT
  Age: 72 Year
  Sex: Female

DRUGS (1)
  1. DIFICID [Suspect]
     Active Substance: FIDAXOMICIN
     Indication: Clostridium difficile infection
     Dosage: TAKE 1 TABLET (200 MG TOTAL) BY MOUTH 2 TIMES DAILY FOR 10 DAYS
     Route: 048
     Dates: start: 20240724, end: 20240726

REACTIONS (4)
  - Glossodynia [Unknown]
  - Tongue erythema [Unknown]
  - Swollen tongue [Unknown]
  - Drug hypersensitivity [Unknown]

NARRATIVE: CASE EVENT DATE: 20240726
